FAERS Safety Report 4291309-3 (Version None)
Quarter: 2004Q1

REPORT INFORMATION
  Report Type: 
  Country: None (occurrence: None)
  Receive Date: 20040211
  Receipt Date: 20031208
  Transmission Date: 20041129
  Serious: No
  Sender: FDA-Public Use
  Company Number: US-GLAXOSMITHKLINE-A0442329A

PATIENT
  Age: 77 Year
  Sex: Male

DRUGS (6)
  1. PAXIL [Suspect]
     Indication: CLAUSTROPHOBIA
     Dosage: 20MG PER DAY
     Route: 048
     Dates: start: 20020101
  2. ZOLOFT [Suspect]
  3. ASPIRIN [Concomitant]
  4. PRAVACHOL [Concomitant]
  5. PRILOSEC [Concomitant]
  6. MULTIVITAMIN [Concomitant]

REACTIONS (3)
  - SOMNOLENCE [None]
  - SWELLING FACE [None]
  - SWOLLEN TONGUE [None]
